FAERS Safety Report 9738262 (Version 1)
Quarter: 2013Q4

REPORT INFORMATION
  Report Type: Spontaneous
  Country: IT (occurrence: IT)
  Receive Date: 20131208
  Receipt Date: 20131208
  Transmission Date: 20140711
  Serious: Yes (Hospitalization)
  Sender: FDA-Public Use
  Company Number: IT-TEVA-447983ISR

PATIENT
  Age: 71 Year
  Sex: Female

DRUGS (8)
  1. VINCRISTINE SULFATE [Suspect]
     Indication: NON-HODGKIN^S LYMPHOMA
     Dosage: 1 DF CYCLICAL
     Route: 042
     Dates: start: 20131009, end: 20131030
  2. MABTHERA - 100 MG 10 ML FIALE - ROCHE REGISTRATION LIMITED [Suspect]
     Indication: NON-HODGKIN^S LYMPHOMA
     Dosage: 1 DF CYCLICAL
     Route: 042
     Dates: start: 20131009, end: 20131030
  3. ENDOXAN BAXTER -500 MG POLVERE PER SOLUZIONE INIETTABILE - BAXTER SPA [Suspect]
     Indication: NON-HODGKIN^S LYMPHOMA
     Dosage: 1 DF CYCLICAL. POWDER FOR SOLUTION FOR INJECTION
     Route: 042
     Dates: start: 20131009, end: 20131030
  4. PIXANTRONE [Suspect]
     Indication: NON-HODGKIN^S LYMPHOMA
     Dosage: 1 DF CYCLICAL
     Route: 042
     Dates: start: 20131009, end: 20131030
  5. PREDNISONE [Suspect]
     Indication: NON-HODGKIN^S LYMPHOMA
     Dosage: 500 MG CYCLICAL
     Route: 048
     Dates: start: 20131009, end: 20131103
  6. MIRAPEXIN - 0,7 MG COMPRESSE [Concomitant]
     Indication: PRODUCT USED FOR UNKNOWN INDICATION
  7. STALEVO - 50 MG/12,5 MG/200 MG COMPRESSA FILM RIVESTITA [Concomitant]
     Indication: PRODUCT USED FOR UNKNOWN INDICATION
  8. EUTIROX - 50 MICROGRAMMI COMPRESSE [Concomitant]
     Indication: PRODUCT USED FOR UNKNOWN INDICATION

REACTIONS (3)
  - Leukopenia [Unknown]
  - Syncope [Unknown]
  - Sopor [Unknown]
